FAERS Safety Report 12423933 (Version 1)
Quarter: 2016Q2

REPORT INFORMATION
  Report Type: Spontaneous
  Country: US (occurrence: US)
  Receive Date: 20160601
  Receipt Date: 20160601
  Transmission Date: 20160815
  Serious: No
  Sender: FDA-Public Use
  Company Number: US-NOVEN PHARMACEUTICALS, INC.-US2016000391

PATIENT

DRUGS (2)
  1. DAYTRANA [Suspect]
     Active Substance: METHYLPHENIDATE
     Dosage: 20 MG, UNKNOWN
     Route: 062
     Dates: start: 201509
  2. DAYTRANA [Suspect]
     Active Substance: METHYLPHENIDATE
     Indication: ATTENTION DEFICIT/HYPERACTIVITY DISORDER
     Dosage: CUTTING 10 MG PATCHES, UNKNOWN
     Route: 062
     Dates: start: 2015, end: 201508

REACTIONS (6)
  - Disturbance in attention [Unknown]
  - Wrong technique in product usage process [Recovered/Resolved]
  - Product adhesion issue [Unknown]
  - Off label use [Recovered/Resolved]
  - Incorrect drug administration duration [Recovered/Resolved]
  - Crying [Unknown]

NARRATIVE: CASE EVENT DATE: 2015
